FAERS Safety Report 24125313 (Version 2)
Quarter: 2024Q3

REPORT INFORMATION
  Report Type: Spontaneous
  Country: CN (occurrence: CN)
  Receive Date: 20240723
  Receipt Date: 20240729
  Transmission Date: 20241016
  Serious: Yes (Death, Other)
  Sender: AMGEN
  Company Number: CN-AMGEN-CHNSP2024143592

PATIENT
  Age: 60 Year
  Sex: Male

DRUGS (2)
  1. BLINATUMOMAB [Suspect]
     Active Substance: BLINATUMOMAB
     Indication: Acute lymphocytic leukaemia recurrent
     Dosage: 28 MICROGRAM (DAY 1-8)
     Route: 065
  2. BLINATUMOMAB [Suspect]
     Active Substance: BLINATUMOMAB
     Dosage: 28 MICROGRAM (DAY 15-20)
     Route: 065

REACTIONS (3)
  - Acute graft versus host disease in skin [Unknown]
  - Death [Fatal]
  - Graft versus host disease in gastrointestinal tract [Unknown]
